FAERS Safety Report 8672039 (Version 6)
Quarter: 2013Q2

REPORT INFORMATION
  Report Type: Spontaneous
  Country: US (occurrence: US)
  Receive Date: 20120719
  Receipt Date: 20130405
  Transmission Date: 20140414
  Serious: Yes (Hospitalization)
  Sender: FDA-Public Use
  Company Number: US-BIOGENIDEC-2012BI024620

PATIENT
  Age: 56 Year
  Sex: Female

DRUGS (23)
  1. TYSABRI [Suspect]
     Indication: MULTIPLE SCLEROSIS
     Route: 042
     Dates: start: 20080401, end: 20080819
  2. TYSABRI [Suspect]
     Indication: MULTIPLE SCLEROSIS
     Route: 042
     Dates: start: 20120118
  3. LISINOPRIL [Concomitant]
  4. WELLBUTRIN [Concomitant]
  5. AMPYRA [Concomitant]
  6. NAMENDA [Concomitant]
  7. AMANTADINE [Concomitant]
  8. ABILIFY [Concomitant]
  9. FLEXERIL [Concomitant]
  10. VYTORIN [Concomitant]
  11. NEXIUM [Concomitant]
  12. COZAAR [Concomitant]
  13. HUMALOG [Concomitant]
  14. LANTUS [Concomitant]
  15. CYMBALTA [Concomitant]
  16. REMERON [Concomitant]
  17. LIDODERM PATCH [Concomitant]
  18. LEVOTHYROXINE [Concomitant]
  19. FENTANYL [Concomitant]
  20. VICODIN [Concomitant]
  21. OSCAL [Concomitant]
  22. ASPIRIN [Concomitant]
  23. MAGNESIUM OXIDE [Concomitant]

REACTIONS (15)
  - Small intestinal obstruction [Recovered/Resolved]
  - Fall [Recovered/Resolved]
  - Urinary tract infection [Recovered/Resolved]
  - Diabetes mellitus [Not Recovered/Not Resolved]
  - Dementia [Not Recovered/Not Resolved]
  - Convulsion [Unknown]
  - Bladder dysfunction [Unknown]
  - Sepsis [Unknown]
  - Abasia [Unknown]
  - Tremor [Recovered/Resolved]
  - Vomiting [Recovered/Resolved]
  - Vision blurred [Recovered/Resolved]
  - Volvulus [Recovered/Resolved]
  - Kidney infection [Recovered/Resolved]
  - Pneumonia [Recovered/Resolved]
